FAERS Safety Report 8359195-X (Version None)
Quarter: 2012Q2

REPORT INFORMATION
  Report Type: 
  Country: None (occurrence: None)
  Receive Date: 20120511
  Receipt Date: 20120511
  Transmission Date: 20120825
  Serious: Yes (Other)
  Sender: FDA-Public Use
  Company Number: None

PATIENT
  Age: 54 Year
  Sex: Female
  Weight: 83.4619 kg

DRUGS (3)
  1. SINEMET [Suspect]
     Indication: PARKINSON'S DISEASE
     Dosage: 10/100 4 X DAY
     Dates: start: 20100325
  2. SINEMET [Suspect]
     Indication: PARKINSON'S DISEASE
     Dosage: 25/250 4X A DAY
     Dates: start: 20110412
  3. AZILECT [Suspect]
     Indication: PARKINSON'S DISEASE
     Dosage: 10 MG 1 A DAY
     Dates: start: 20110701

REACTIONS (3)
  - ORTHOSTATIC HYPOTENSION [None]
  - MUSCLE SPASMS [None]
  - DIZZINESS [None]
